FAERS Safety Report 11086811 (Version 2)
Quarter: 2015Q3

REPORT INFORMATION
  Report Type: Spontaneous
  Country: JP (occurrence: JP)
  Receive Date: 20150504
  Receipt Date: 20150720
  Transmission Date: 20151125
  Serious: Yes (Death)
  Sender: FDA-Public Use
  Company Number: JP-JNJFOC-20150420509

PATIENT
  Age: 51 Year
  Sex: Male

DRUGS (10)
  1. XEPLION [Suspect]
     Active Substance: PALIPERIDONE PALMITATE
     Indication: SCHIZOPHRENIA
     Route: 030
     Dates: start: 20140204, end: 20150410
  2. ZYPREXA [Concomitant]
     Active Substance: OLANZAPINE
     Indication: SCHIZOPHRENIA
     Route: 048
     Dates: start: 20070416, end: 20150410
  3. LEVOTOMIN [Concomitant]
     Active Substance: LEVOMEPROMAZINE
     Indication: SCHIZOPHRENIA
     Route: 048
     Dates: start: 20051206, end: 20150410
  4. MAGMITT [Concomitant]
     Active Substance: MAGNESIUM OXIDE
     Indication: CONSTIPATION
     Route: 048
     Dates: start: 20090602, end: 20150410
  5. SILECE [Concomitant]
     Active Substance: FLUNITRAZEPAM
     Indication: SCHIZOPHRENIA
     Route: 048
     Dates: start: 20051206, end: 20150410
  6. NULOTAN [Concomitant]
     Active Substance: LOSARTAN POTASSIUM
     Indication: HYPERTENSION
     Route: 048
     Dates: start: 20060210, end: 20150410
  7. LANSOPRAZOLE. [Concomitant]
     Active Substance: LANSOPRAZOLE
     Indication: GASTROOESOPHAGEAL REFLUX DISEASE
     Route: 048
     Dates: start: 20120424, end: 20150410
  8. HALCION [Concomitant]
     Active Substance: TRIAZOLAM
     Indication: SCHIZOPHRENIA
     Route: 048
     Dates: start: 20051213, end: 20150410
  9. CONSTAN [Concomitant]
     Active Substance: ALPRAZOLAM
     Indication: SCHIZOPHRENIA
     Route: 048
     Dates: start: 20140107, end: 20150410
  10. YODEL [Concomitant]
     Active Substance: SENNA LEAF
     Indication: CONSTIPATION
     Route: 048
     Dates: start: 20051206, end: 20150410

REACTIONS (3)
  - Asphyxia [Fatal]
  - Aspiration [Fatal]
  - Cardio-respiratory arrest [Fatal]

NARRATIVE: CASE EVENT DATE: 20150410
